FAERS Safety Report 15597639 (Version 4)
Quarter: 2020Q3

REPORT INFORMATION
  Report Type: Spontaneous
  Country: CA (occurrence: CA)
  Receive Date: 20181108
  Receipt Date: 20200910
  Transmission Date: 20201102
  Serious: Yes (Death, Hospitalization, Other)
  Sender: FDA-Public Use
  Company Number: CA-009507513-1509CAN013476

PATIENT
  Age: 62 Year
  Sex: Female
  Weight: 63 kg

DRUGS (5)
  1. INTRON A [Suspect]
     Active Substance: INTERFERON ALFA-2B
     Dosage: 3 MIU, 3 TIMES WEEKLY
     Route: 058
  2. PERINDOPRIL [Concomitant]
     Active Substance: PERINDOPRIL
  3. INTRON A [Suspect]
     Active Substance: INTERFERON ALFA-2B
     Indication: POLYCYTHAEMIA VERA
     Dosage: 2.5 MILLION UNITS (MIU), 3 TIMES WEEKLY
     Route: 058
     Dates: start: 2012
  4. INTRON A [Suspect]
     Active Substance: INTERFERON ALFA-2B
     Dosage: 2.5 MIU, 3 TIMES WEEKLY
     Route: 058
  5. INTRON A [Suspect]
     Active Substance: INTERFERON ALFA-2B
     Dosage: 2.5 MEGA?INTERNATIONAL UNIT, QD
     Route: 065

REACTIONS (8)
  - Staphylococcal sepsis [Fatal]
  - Anxiety [Unknown]
  - Loss of consciousness [Unknown]
  - Deep vein thrombosis [Unknown]
  - Product administration error [Unknown]
  - Bacteraemia [Unknown]
  - Off label use [Unknown]
  - Meningitis [Unknown]

NARRATIVE: CASE EVENT DATE: 20130401
